FAERS Safety Report 5872385-0 (Version None)
Quarter: 2008Q3

REPORT INFORMATION
  Report Type: 
  Country: None (occurrence: None)
  Receive Date: 20080902
  Receipt Date: 20080819
  Transmission Date: 20090109
  Serious: Yes (Hospitalization, Other)
  Sender: FDA-Public Use
  Company Number: 2008S1015479

PATIENT
  Age: 14 Year
  Sex: Male

DRUGS (8)
  1. AZATHIOPRINE [Suspect]
     Indication: CROHN'S DISEASE
     Dosage: 25 MG, DAILY; ORAL
     Route: 048
  2. HYDROCORTISONE [Suspect]
     Indication: DRUG USE FOR UNKNOWN INDICATION
  3. HYDROCORTISONE [Concomitant]
  4. MEBEVERINE (MEBEVERINE) [Concomitant]
  5. OMEPRAZOLE [Concomitant]
  6. POTASSIUM (POTASSIUM) [Concomitant]
  7. PREDNISONE [Concomitant]
  8. PYRIDOXINE HYDROCHLORIDE (PYRIDOXINE HYDROCHLORIDE) [Concomitant]

REACTIONS (3)
  - CONDITION AGGRAVATED [None]
  - CROHN'S DISEASE [None]
  - REVERSIBLE POSTERIOR LEUKOENCEPHALOPATHY SYNDROME [None]
